FAERS Safety Report 7455425-7 (Version None)
Quarter: 2011Q2

REPORT INFORMATION
  Report Type: 
  Country: None (occurrence: None)
  Receive Date: 20110503
  Receipt Date: 20110427
  Transmission Date: 20111010
  Serious: Yes (Hospitalization)
  Sender: FDA-Public Use
  Company Number: US-TEVA-274100USA

PATIENT
  Sex: Female

DRUGS (28)
  1. IRINOTECAN [Suspect]
     Indication: NEOPLASM
     Dosage: ON DAY 1 OF EACH 28 DAY CYCLE
     Route: 042
     Dates: start: 20110110
  2. ENOXAPARIN SODIUM [Concomitant]
     Indication: PULMONARY EMBOLISM
     Dosage: 100 MILLIGRAM;
     Dates: start: 20090928, end: 20110328
  3. ROSUVASTATIN CALCIUM [Concomitant]
     Indication: HYPERCHOLESTEROLAEMIA
     Dosage: 20 MILLIGRAM;
  4. LEUCOVORIN CALCIUM [Suspect]
     Indication: NEOPLASM
     Dosage: ON DAY 1 OF EACH 28 DAY CYCLE
     Route: 042
     Dates: start: 20110110
  5. OXYCODONE HCL AND ACETAMINOPHEN [Concomitant]
     Indication: BACK PAIN
     Dosage: 5/325MG
  6. ACETYLSALICYLIC ACID SRT [Concomitant]
     Dosage: 325 MILLIGRAM;
  7. PRASUGREL HYDROCHLORIDE [Concomitant]
     Indication: CORONARY ARTERY DISEASE
     Dosage: 10 MILLIGRAM;
  8. COLECALCIFEROL [Concomitant]
     Indication: MEDICAL DIET
     Dosage: 1000 UNITS
  9. LOPERAMIDE HYDROCHLORIDE [Concomitant]
     Indication: DIARRHOEA
     Dosage: 1-2 TABLETS
     Dates: start: 20110221
  10. ENOXAPARIN SODIUM [Concomitant]
     Indication: DEEP VEIN THROMBOSIS
     Dosage: 120 MILLIGRAM;
     Dates: start: 20110328
  11. INSULIN ASPART [Concomitant]
     Indication: DIABETES MELLITUS
     Dosage: 100 UNIT/ML
     Dates: start: 20090605
  12. MULTI-VITAMIN [Concomitant]
     Indication: MEDICAL DIET
     Dosage: 1 TABLET;
  13. L-GLUTATHIONE [Concomitant]
     Indication: MEDICAL DIET
     Dosage: 50 MILLIGRAM;
     Dates: start: 20110205
  14. DOCOSANOL [Concomitant]
     Indication: STOMATITIS
     Dates: start: 20110126
  15. FENTANYL [Concomitant]
     Indication: BACK PAIN
     Route: 062
     Dates: start: 20101228
  16. GLYCERYL TRINITRATE [Concomitant]
     Indication: CORONARY ARTERY DISEASE
     Route: 060
  17. PANCREATIN [Concomitant]
     Indication: MEDICAL DIET
  18. ALPHA-D-GALACTOSIDASE [Concomitant]
     Indication: FLATULENCE
     Dates: start: 20110110
  19. FLUOROURACIL [Suspect]
     Indication: NEOPLASM
     Dosage: 46 HR INFUSION ON DAY 1, 15 OF EACH 28 DAY CYCLE
     Route: 042
     Dates: start: 20110110
  20. CALCIUM D3 [Concomitant]
     Indication: MEDICAL DIET
     Dosage: 1 TABLET;
  21. FISH OIL [Concomitant]
     Indication: MEDICAL DIET
     Dosage: 1000 MILLIGRAM;
  22. INVESTIGATIONAL DRUG - ABT-888 (VELIPARIB) [Suspect]
     Indication: NEOPLASM
     Dosage: 160 MILLIGRAM; DAYS 15-19 IN CYCLE 1, DAYS 1-5, 15-19 OF EACH SUBSEQUENT CYCLE
     Route: 048
     Dates: start: 20110124, end: 20110311
  23. SILICON DIOXIDE W/SIMETICONE [Concomitant]
     Indication: FLATULENCE
     Dates: start: 20110110
  24. INSULIN DETEMIR [Concomitant]
     Indication: DIABETES MELLITUS
     Dosage: 30 UNIT
     Dates: start: 20081215
  25. NOVOFINE [Concomitant]
     Indication: DIABETES MELLITUS
     Dosage: 32G X 6 MM
     Dates: start: 20081215
  26. MILK THISTLE [Concomitant]
     Indication: MEDICAL DIET
     Dosage: 200 MILLIGRAM;
     Dates: start: 20110205
  27. ESOMEPRAZOLE MAGNESIUM [Concomitant]
     Indication: GASTROOESOPHAGEAL REFLUX DISEASE
     Dosage: 1 DOSAGE FORMS;
  28. LEVOTHYROXINE SODIUM [Concomitant]
     Indication: HYPOTHYROIDISM
     Dosage: 100 MICROGRAM;

REACTIONS (1)
  - PYREXIA [None]
